FAERS Safety Report 9914637 (Version 1)
Quarter: 2014Q1

REPORT INFORMATION
  Report Type: Spontaneous
  Country: US (occurrence: US)
  Receive Date: 20140220
  Receipt Date: 20140220
  Transmission Date: 20141002
  Serious: Yes (Other)
  Sender: FDA-Public Use
  Company Number: 2014SP000430

PATIENT
  Age: 29 Year
  Sex: Male

DRUGS (2)
  1. LATUDA [Suspect]
     Route: 048
  2. LATUDA [Suspect]
     Route: 048

REACTIONS (1)
  - Loss of consciousness [Unknown]
